FAERS Safety Report 15289614 (Version 2)
Quarter: 2018Q3

REPORT INFORMATION
  Report Type: Report from Study
  Country: US (occurrence: US)
  Receive Date: 20180817
  Receipt Date: 20180914
  Transmission Date: 20181010
  Serious: No
  Sender: FDA-Public Use
  Company Number: PHEH2018US033663

PATIENT
  Sex: Male

DRUGS (1)
  1. ENTRESTO [Suspect]
     Active Substance: SACUBITRIL\VALSARTAN
     Indication: CARDIAC FAILURE
     Dosage: 24 MG SACUBITRIL/ 26 MG VALSARTAN, BID
     Route: 048
     Dates: start: 201807

REACTIONS (2)
  - Dizziness [Unknown]
  - Chest pain [Unknown]
